FAERS Safety Report 9477908 (Version 1)
Quarter: 2013Q3

REPORT INFORMATION
  Report Type: Spontaneous
  Country: US (occurrence: None)
  Receive Date: 20130826
  Receipt Date: 20130826
  Transmission Date: 20140515
  Serious: Yes (Life-Threatening, Hospitalization, Disabling)
  Sender: FDA-Public Use
  Company Number: None

PATIENT
  Age: 81 Year
  Sex: Male
  Weight: 65.1 kg

DRUGS (2)
  1. TRAMADOL [Suspect]
     Indication: PAIN
     Route: 048
     Dates: start: 20130524, end: 20130602
  2. FLUOXETINE [Suspect]
     Indication: DEMENTIA
     Route: 048
     Dates: start: 20130521, end: 20130602

REACTIONS (8)
  - Agitation [None]
  - Tremor [None]
  - Muscle rigidity [None]
  - Myoclonus [None]
  - Serotonin syndrome [None]
  - Mental status changes [None]
  - Vision blurred [None]
  - Confusional state [None]
